FAERS Safety Report 8578501-4 (Version None)
Quarter: 2012Q3

REPORT INFORMATION
  Report Type: 
  Country: None (occurrence: None)
  Receive Date: 20120808
  Receipt Date: 20120731
  Transmission Date: 20120928
  Serious: Yes (Hospitalization)
  Sender: FDA-Public Use
  Company Number: US-US-EMD SERONO, INC.-7023682

PATIENT
  Sex: Male
  Weight: 108 kg

DRUGS (8)
  1. ARICEPT [Concomitant]
     Indication: PRODUCT USED FOR UNKNOWN INDICATION
  2. ONGLYZA [Concomitant]
     Indication: TYPE 2 DIABETES MELLITUS
  3. CIALIS [Concomitant]
     Indication: ERECTILE DYSFUNCTION
  4. ACTOS [Concomitant]
     Indication: TYPE 2 DIABETES MELLITUS
  5. ASPIRIN [Concomitant]
     Indication: BRAIN STEM STROKE
     Dates: end: 20100201
  6. EFFEXOR [Concomitant]
     Indication: DEPRESSION
  7. SIMVASTATIN [Concomitant]
     Indication: BLOOD CHOLESTEROL INCREASED
  8. REBIF [Suspect]
     Indication: MULTIPLE SCLEROSIS
     Route: 058
     Dates: start: 20081022

REACTIONS (8)
  - BRAIN STEM STROKE [None]
  - TRANSIENT ISCHAEMIC ATTACK [None]
  - SLEEP APNOEA SYNDROME [None]
  - WEIGHT INCREASED [None]
  - PAIN IN EXTREMITY [None]
  - DERMATITIS ATOPIC [None]
  - ARTHRITIS [None]
  - GAIT DISTURBANCE [None]
